FAERS Safety Report 5706917-X (Version None)
Quarter: 2008Q2

REPORT INFORMATION
  Report Type: 
  Country: None (occurrence: None)
  Receive Date: 20080416
  Receipt Date: 20080404
  Transmission Date: 20081010
  Serious: Yes (Other)
  Sender: FDA-Public Use
  Company Number: US-AMGEN-STX264738

PATIENT
  Sex: Male

DRUGS (4)
  1. ENBREL [Suspect]
     Indication: ANKYLOSING SPONDYLITIS
     Route: 058
     Dates: start: 20050805
  2. ENBREL [Suspect]
     Indication: SPONDYLOARTHROPATHY
  3. SULFASALAZINE [Concomitant]
     Route: 065
     Dates: start: 20050805
  4. VICODIN [Concomitant]
     Route: 065
     Dates: start: 20050805

REACTIONS (14)
  - BACK INJURY [None]
  - BLOOD PRESSURE INCREASED [None]
  - BURNING SENSATION [None]
  - DEPRESSION [None]
  - FALL [None]
  - HEADACHE [None]
  - INJECTION SITE IRRITATION [None]
  - INJECTION SITE PRURITUS [None]
  - INJECTION SITE SWELLING [None]
  - INJECTION SITE WARMTH [None]
  - JOINT INJURY [None]
  - MUSCLE TWITCHING [None]
  - NAUSEA [None]
  - PARAESTHESIA [None]
